FAERS Safety Report 23092368 (Version 1)
Quarter: 2023Q4

REPORT INFORMATION
  Report Type: Spontaneous
  Country: US (occurrence: None)
  Receive Date: 20231021
  Receipt Date: 20231021
  Transmission Date: 20240109
  Serious: Yes (Other)
  Sender: FDA-Public Use
  Company Number: US-MICRO LABS LIMITED-ML2023-05926

PATIENT
  Age: 17 Year
  Sex: Male

DRUGS (2)
  1. FLUOXETINE [Suspect]
     Active Substance: FLUOXETINE HYDROCHLORIDE
     Indication: Product used for unknown indication
     Dosage: 300 MG FLUOXETINE (15 TABLETS OF FLUOXETINE 20 MG)
  2. MELATONIN [Suspect]
     Active Substance: MELATONIN
     Indication: Product used for unknown indication
     Dosage: 300 MG MELATONIN (60 TABLETS OF MELATONIN 5 MG)

REACTIONS (18)
  - Neurotoxicity [Unknown]
  - Postictal state [Unknown]
  - Musculoskeletal stiffness [Unknown]
  - Hyperglycaemia [Unknown]
  - Anion gap increased [Unknown]
  - Hyperammonaemia [Unknown]
  - Respiratory rate increased [Unknown]
  - Slow speech [Unknown]
  - Confusional state [Unknown]
  - Fatigue [Unknown]
  - Hepatic enzyme increased [Unknown]
  - Tremor [Unknown]
  - Restlessness [Unknown]
  - Generalised tonic-clonic seizure [Unknown]
  - Loss of consciousness [Unknown]
  - Disorientation [Unknown]
  - Suicide attempt [Unknown]
  - Intentional overdose [Unknown]
